FAERS Safety Report 13121263 (Version 1)
Quarter: 2017Q1

REPORT INFORMATION
  Report Type: Spontaneous
  Country: US (occurrence: US)
  Receive Date: 20170114
  Receipt Date: 20170114
  Transmission Date: 20170428
  Serious: Yes (Hospitalization)
  Sender: FDA-Public Use
  Company Number: None

PATIENT
  Age: 67 Year
  Sex: Male

DRUGS (1)
  1. FLUORESCEIN SODIUM\PROPARACAINE [Suspect]
     Active Substance: FLUORESCEIN SODIUM\PROPARACAINE HYDROCHLORIDE
     Dates: start: 20161219, end: 20161219

REACTIONS (3)
  - Pruritus [None]
  - Anaphylactic reaction [None]
  - Pharyngeal oedema [None]

NARRATIVE: CASE EVENT DATE: 20161219
